FAERS Safety Report 14619915 (Version 2)
Quarter: 2018Q1

REPORT INFORMATION
  Report Type: Spontaneous
  Country: US (occurrence: US)
  Receive Date: 20180309
  Receipt Date: 20180314
  Transmission Date: 20180509
  Serious: No
  Sender: FDA-Public Use
  Company Number: US-PFIZER INC-2018095043

PATIENT
  Age: 82 Year
  Sex: Female
  Weight: 89.8 kg

DRUGS (1)
  1. REVATIO [Suspect]
     Active Substance: SILDENAFIL CITRATE
     Indication: PULMONARY HYPERTENSION
     Dosage: 20 MG, 3X/DAY (1 THREE TIMES DAILY, IN THE MORNING, NOON AND AT SUPPERTIME)
     Route: 048
     Dates: start: 201801

REACTIONS (3)
  - Dry mouth [Not Recovered/Not Resolved]
  - Dysgeusia [Unknown]
  - Dizziness [Not Recovered/Not Resolved]

NARRATIVE: CASE EVENT DATE: 201801
